FAERS Safety Report 5100607-2 (Version None)
Quarter: 2006Q3

REPORT INFORMATION
  Report Type: 
  Country: None (occurrence: None)
  Receive Date: 20060907
  Receipt Date: 20060907
  Transmission Date: 20061208
  Serious: Yes (Other)
  Sender: FDA-Public Use
  Company Number: None

PATIENT
  Age: 59 Year
  Sex: Male
  Weight: 76.2 kg

DRUGS (8)
  1. LISINOPRIL [Suspect]
     Dosage: 5 MG , QD,BY MOUTH
     Dates: start: 20060427, end: 20060428
  2. PREVACID [Concomitant]
  3. HYDRALAZINE [Concomitant]
  4. ZOCOR [Concomitant]
  5. CALCIUM CARBONATE [Concomitant]
  6. COREG [Concomitant]
  7. FUROSEMIDE [Concomitant]
  8. LOVENOX [Concomitant]

REACTIONS (2)
  - ANAPHYLACTIC REACTION [None]
  - LARYNGOSPASM [None]
